FAERS Safety Report 4517683-8 (Version None)
Quarter: 2004Q4

REPORT INFORMATION
  Report Type: 
  Country: None (occurrence: None)
  Receive Date: 20041203
  Receipt Date: 20041130
  Transmission Date: 20050328
  Serious: Yes (Hospitalization, Other)
  Sender: FDA-Public Use
  Company Number: 200419170US

PATIENT
  Sex: Female

DRUGS (2)
  1. LOVENOX [Suspect]
     Indication: ASYMPTOMATIC GENE CARRIER
     Dates: start: 20040301, end: 20040601
  2. LOVENOX [Suspect]
     Indication: FACTOR V LEIDEN MUTATION
     Dates: start: 20040301, end: 20040601

REACTIONS (6)
  - COMPLICATIONS OF MATERNAL EXPOSURE TO THERAPEUTIC DRUGS [None]
  - DRUG EXPOSURE DURING PREGNANCY [None]
  - FOETAL DISORDER [None]
  - HEPATIC MASS [None]
  - POLYHYDRAMNIOS [None]
  - PREMATURE BABY [None]
